FAERS Safety Report 7592479-1 (Version None)
Quarter: 2011Q3

REPORT INFORMATION
  Report Type: 
  Country: None (occurrence: None)
  Receive Date: 20110706
  Receipt Date: 20110621
  Transmission Date: 20111222
  Serious: Yes (Death, Other)
  Sender: FDA-Public Use
  Company Number: US-JNJFOC-20110607394

PATIENT
  Sex: Male
  Weight: 72.58 kg

DRUGS (2)
  1. LEVAQUIN [Suspect]
     Indication: UPPER RESPIRATORY TRACT INFECTION
     Route: 048
     Dates: start: 20050401, end: 20050401
  2. STEROIDS NOS [Suspect]
     Indication: RESPIRATORY DISORDER
     Route: 055

REACTIONS (2)
  - TENDONITIS [None]
  - PULMONARY HYPERTENSION [None]
